FAERS Safety Report 6037067-3 (Version None)
Quarter: 2009Q1

REPORT INFORMATION
  Report Type: 
  Country: None (occurrence: None)
  Receive Date: 20090114
  Receipt Date: 20090105
  Transmission Date: 20090719
  Serious: Yes (Hospitalization, Other)
  Sender: FDA-Public Use
  Company Number: PHHY2008NL14069

PATIENT
  Sex: Male
  Weight: 72 kg

DRUGS (8)
  1. EXELON [Suspect]
     Indication: DEMENTIA ALZHEIMER'S TYPE
     Dosage: 4.6 MG
     Route: 062
     Dates: start: 20080219, end: 20080319
  2. EXELON [Suspect]
     Dosage: 9.5 MG
     Route: 062
     Dates: start: 20080320
  3. EXELON [Suspect]
     Dosage: 4.6 MG
     Route: 062
     Dates: start: 20080820, end: 20080901
  4. EXELON [Suspect]
     Dosage: 9.5 MG
     Route: 062
     Dates: start: 20080919, end: 20081018
  5. TEGRETOL [Suspect]
     Dosage: 1.5 DF, BID
     Route: 048
  6. ASPIRIN [Concomitant]
     Dosage: UNK
  7. ACENOCOUMAROL [Concomitant]
  8. ANTIEPILEPTICS [Concomitant]

REACTIONS (5)
  - ARRHYTHMIA [None]
  - CARDIAC PACEMAKER INSERTION [None]
  - DIZZINESS [None]
  - HEART RATE DECREASED [None]
  - PALLOR [None]
